FAERS Safety Report 26117489 (Version 2)
Quarter: 2025Q4

REPORT INFORMATION
  Report Type: Spontaneous
  Country: EU (occurrence: EU)
  Receive Date: 20251203
  Receipt Date: 20251217
  Transmission Date: 20260117
  Serious: Yes (Disabling)
  Sender: ABBVIE
  Company Number: None

PATIENT
  Age: 46 Year
  Sex: Female

DRUGS (2)
  1. ENANTONE LP [Suspect]
     Active Substance: LEUPROLIDE ACETATE
     Indication: Breast cancer
     Dosage: 3.75 MILLIGRAM, MONTHLY
     Route: 058
     Dates: start: 20250131
  2. PACLITAXEL [Suspect]
     Active Substance: PACLITAXEL
     Indication: Breast cancer
     Dosage: 90 MILLIGRAM, 1/WEEK
     Route: 042
     Dates: start: 20250404, end: 20250613

REACTIONS (1)
  - Pain in extremity [Not Recovered/Not Resolved]

NARRATIVE: CASE EVENT DATE: 20250502
